FAERS Safety Report 5886478-5 (Version None)
Quarter: 2008Q3

REPORT INFORMATION
  Report Type: 
  Country: None (occurrence: None)
  Receive Date: 20080818
  Receipt Date: 20080311
  Transmission Date: 20090109
  Serious: Yes (Hospitalization)
  Sender: FDA-Public Use
  Company Number: 20073584

PATIENT
  Age: 77 Year
  Sex: Female

DRUGS (2)
  1. LIORESAL [Suspect]
     Indication: CEREBROVASCULAR ACCIDENT
     Dosage: 500MCG/DAY, INTRATHECAL
     Route: 037
     Dates: start: 20060705
  2. LIORESAL [Suspect]
     Indication: MUSCLE SPASTICITY
     Dosage: 500MCG/DAY, INTRATHECAL
     Route: 037
     Dates: start: 20060705

REACTIONS (2)
  - CONFUSIONAL STATE [None]
  - DRUG INEFFECTIVE [None]
